FAERS Safety Report 8791146 (Version 1)
Quarter: 2012Q4

REPORT INFORMATION
  Report Type: Spontaneous
  Country: US (occurrence: None)
  Receive Date: 20120907
  Receipt Date: 20120907
  Transmission Date: 20130627
  Serious: Yes (Other)
  Sender: FDA-Public Use
  Company Number: 1402305

PATIENT
  Age: 11 Year
  Sex: Female

DRUGS (5)
  1. VINCRISTINE SULFATE [Suspect]
     Indication: EWING^S SARCOMA
  2. DOXORUBICIN [Suspect]
  3. CYCLOPHOSPHAMIDE [Suspect]
  4. IFOSFAMIDE [Suspect]
  5. ETOPOSIDE [Suspect]

REACTIONS (2)
  - Myositis [None]
  - Arthralgia [None]
